FAERS Safety Report 18739464 (Version 1)
Quarter: 2021Q1

REPORT INFORMATION
  Report Type: Spontaneous
  Country: US (occurrence: US)
  Receive Date: 20210113
  Receipt Date: 20210113
  Transmission Date: 20210419
  Serious: No
  Sender: FDA-Public Use
  Company Number: None

PATIENT
  Age: 53 Year
  Sex: Male

DRUGS (1)
  1. SOFOSB/VELPAT TAB 400?100 MG [Suspect]
     Active Substance: SOFOSBUVIR\VELPATASVIR
     Indication: HEPATITIS C
     Route: 048
     Dates: start: 202011

REACTIONS (3)
  - Visual impairment [None]
  - Headache [None]
  - Pollakiuria [None]

NARRATIVE: CASE EVENT DATE: 20210113
